FAERS Safety Report 16539799 (Version 1)
Quarter: 2019Q3

REPORT INFORMATION
  Report Type: Spontaneous
  Country: US (occurrence: US)
  Receive Date: 20190708
  Receipt Date: 20190708
  Transmission Date: 20191004
  Serious: No
  Sender: FDA-Public Use
  Company Number: US-PFIZER INC-2019287218

PATIENT
  Sex: Female

DRUGS (6)
  1. GEMFIBROZIL. [Suspect]
     Active Substance: GEMFIBROZIL
     Dosage: UNK
  2. HYDROCODONE [Suspect]
     Active Substance: HYDROCODONE
     Dosage: UNK
  3. PAROXETINE. [Suspect]
     Active Substance: PAROXETINE
     Dosage: UNK
  4. EZETIMIBE. [Suspect]
     Active Substance: EZETIMIBE
     Dosage: UNK
  5. ACETAMINOPHEN. [Suspect]
     Active Substance: ACETAMINOPHEN
     Dosage: UNK
  6. RANITIDINE. [Suspect]
     Active Substance: RANITIDINE
     Dosage: UNK

REACTIONS (1)
  - Drug hypersensitivity [Unknown]
